FAERS Safety Report 14665876 (Version 1)
Quarter: 2018Q1

REPORT INFORMATION
  Report Type: Spontaneous
  Country: CA (occurrence: CA)
  Receive Date: 20180321
  Receipt Date: 20180321
  Transmission Date: 20180509
  Serious: Yes (Hospitalization, Other)
  Sender: FDA-Public Use
  Company Number: CA-PFIZER INC-2017245496

PATIENT
  Age: 39 Year
  Sex: Female

DRUGS (3)
  1. STATEX [Concomitant]
     Active Substance: MORPHINE SULFATE
     Dosage: UNK UNK, AS NEEDED
  2. MORPHINE [Concomitant]
     Active Substance: MORPHINE
     Indication: PAIN
     Dosage: UNK
  3. CELEBREX [Suspect]
     Active Substance: CELECOXIB
     Dosage: 200 MG, 2X/DAY

REACTIONS (5)
  - Drug ineffective [Unknown]
  - White blood cell count increased [Unknown]
  - Abdominal pain [Unknown]
  - Endometrial disorder [Unknown]
  - Adnexa uteri pain [Not Recovered/Not Resolved]
